FAERS Safety Report 7517343-5 (Version None)
Quarter: 2011Q2

REPORT INFORMATION
  Report Type: 
  Country: None (occurrence: None)
  Receive Date: 20110601
  Receipt Date: 20110524
  Transmission Date: 20111010
  Serious: Yes (Other)
  Sender: FDA-Public Use
  Company Number: US-ASTRAZENECA-2009UW17568

PATIENT
  Age: 38 Year
  Sex: Female
  Weight: 100.7 kg

DRUGS (31)
  1. SEROQUEL [Suspect]
     Route: 048
     Dates: start: 20050101
  2. SEROQUEL [Suspect]
     Route: 048
     Dates: start: 20090619
  3. CLONAZEPAM [Concomitant]
     Route: 048
     Dates: start: 20090106, end: 20090401
  4. ZYPREXA [Concomitant]
     Dosage: 2.5 MG
     Dates: start: 20030728
  5. RISPERDAL [Concomitant]
     Dosage: 0.5 MG
     Dates: start: 20030902
  6. LEVAQUIN [Concomitant]
     Dosage: 500 MG
     Dates: start: 20030911
  7. APAP W/ CODEINE [Concomitant]
     Dosage: 300/30
     Dates: start: 20050620
  8. SEROQUEL [Suspect]
     Indication: INSOMNIA
     Dosage: 200 MG
     Route: 048
     Dates: start: 20050127
  9. ZOLOFT [Concomitant]
     Dosage: 50 MG
     Route: 048
     Dates: start: 20030902
  10. SIMVASTATIN [Concomitant]
     Route: 048
     Dates: start: 20090106, end: 20090407
  11. DEPAKOTE [Concomitant]
     Dosage: 250 MG
     Route: 048
     Dates: start: 20030728
  12. TRILEPTAL [Concomitant]
     Dosage: 150 MG TO 600 MG
     Dates: start: 20030828
  13. DIFLUCAN [Concomitant]
     Dosage: 200 MG
     Dates: start: 20040501
  14. METHYLPRED [Concomitant]
     Dosage: 4 MG
     Dates: start: 20050326
  15. GEODON [Concomitant]
     Route: 048
     Dates: start: 20090106
  16. VYTORIN [Concomitant]
     Dosage: 10/40 MG
     Dates: start: 20070201
  17. ZOLOFT [Concomitant]
     Route: 048
     Dates: start: 20090106, end: 20090407
  18. GLIPIZIDE [Concomitant]
     Route: 048
     Dates: start: 20090116, end: 20090407
  19. CLONAZEPAM [Concomitant]
     Dosage: 2 MG
     Route: 048
     Dates: start: 20040101
  20. FLUOXETINE [Concomitant]
     Dosage: 10 MG
     Dates: start: 20030728
  21. LORTAB [Concomitant]
     Dosage: 7.5/500
     Dates: start: 20090106
  22. RHINOCORT [Concomitant]
     Dates: start: 20040316
  23. SEROQUEL [Suspect]
     Route: 048
     Dates: start: 20050101
  24. AMITRIPTYLINE HCL [Concomitant]
     Dosage: 75 MG
     Dates: start: 20050127
  25. CELEBREX [Concomitant]
     Dosage: 200 MG
     Dates: start: 20070201
  26. SEROQUEL [Suspect]
     Indication: DEPRESSION
     Dosage: 200 MG
     Route: 048
     Dates: start: 20050127
  27. SEROQUEL [Suspect]
     Route: 048
     Dates: start: 20090619
  28. PRILOSEC [Concomitant]
     Route: 048
     Dates: start: 20090106
  29. MEPER/PROMETH [Concomitant]
     Dosage: 50/25
     Dates: start: 20030911
  30. LEXAPRO [Concomitant]
     Dosage: 20 MG
     Dates: start: 20070201
  31. PROPRANOLOL [Concomitant]
     Dosage: 40 MG
     Dates: start: 20070201

REACTIONS (7)
  - WEIGHT INCREASED [None]
  - HYPERLIPIDAEMIA [None]
  - DIABETES MELLITUS INADEQUATE CONTROL [None]
  - OBESITY [None]
  - TYPE 2 DIABETES MELLITUS [None]
  - BLOOD CHOLESTEROL INCREASED [None]
  - DIABETIC NEUROPATHY [None]
